FAERS Safety Report 4700928-9 (Version None)
Quarter: 2005Q2

REPORT INFORMATION
  Report Type: 
  Country: None (occurrence: None)
  Receive Date: 20050624
  Receipt Date: 20050613
  Transmission Date: 20051028
  Serious: Yes (Other)
  Sender: FDA-Public Use
  Company Number: 8005682

PATIENT
  Age: 49 Year
  Weight: 50 kg

DRUGS (6)
  1. KEPPRA [Suspect]
     Indication: PARTIAL SEIZURES
     Dosage: 1500 MG 2/D PO
     Route: 048
     Dates: start: 20031211, end: 20040303
  2. KEPPRA [Suspect]
     Indication: PARTIAL SEIZURES
     Dosage: 1000 MG 2/D PO
     Route: 048
     Dates: start: 20040304, end: 20040708
  3. TEMOZOLOMIDE [Suspect]
     Indication: OLIGODENDROGLIOMA
     Dosage: /D PO
     Route: 048
     Dates: start: 20031229, end: 20040114
  4. TEMOZOLOMIDE [Suspect]
     Indication: OLIGODENDROGLIOMA
     Dosage: /D PO
     Route: 048
     Dates: start: 20040405, end: 20040409
  5. TEMOZOLOMIDE [Suspect]
     Indication: OLIGODENDROGLIOMA
     Dosage: /D PO
     Route: 048
     Dates: start: 20040601, end: 20040604
  6. 3D CONFORMAL RADIATION THERAPY [Suspect]
     Indication: OLIGODENDROGLIOMA
     Dates: start: 20031222, end: 20040215

REACTIONS (6)
  - BONE MARROW DEPRESSION [None]
  - LEUKOPENIA [None]
  - NEUTROPENIA [None]
  - RECURRENT CANCER [None]
  - THROMBOCYTOPENIA [None]
  - WHITE BLOOD CELL COUNT INCREASED [None]
